FAERS Safety Report 20368200 (Version 5)
Quarter: 2022Q1

REPORT INFORMATION
  Report Type: Report from Study
  Country: ES (occurrence: None)
  Receive Date: 20220124
  Receipt Date: 20220315
  Transmission Date: 20220423
  Serious: Yes (Hospitalization)
  Sender: FDA-Public Use
  Company Number: ES-ROCHE-3005485

PATIENT
  Age: 71 Year
  Sex: Male

DRUGS (19)
  1. ATEZOLIZUMAB [Suspect]
     Active Substance: ATEZOLIZUMAB
     Indication: Non-small cell lung cancer metastatic
     Dosage: DOSE LAST STUDY DRUG ADMIN PRIOR AE IS 1200 MG
     Route: 041
     Dates: start: 20210430
  2. BEVACIZUMAB [Suspect]
     Active Substance: BEVACIZUMAB
     Indication: Non-small cell lung cancer metastatic
     Dosage: DOSE LAST STUDY DRUG ADMIN PRIOR AE IS 945 MG
     Route: 042
     Dates: start: 20210430
  3. DOCETAXEL [Suspect]
     Active Substance: DOCETAXEL
     Indication: Non-small cell lung cancer metastatic
     Dosage: DOSE LAST STUDY DRUG ADMIN PRIOR AE IS 125 MG
     Route: 042
     Dates: start: 20220112
  4. ASPIRIN [Concomitant]
     Active Substance: ASPIRIN
     Indication: Coronary artery disease
     Route: 048
     Dates: start: 2002
  5. METAMIZOL [Concomitant]
     Active Substance: METAMIZOLE SODIUM
     Indication: Pleuritic pain
     Route: 048
     Dates: start: 20211214
  6. ACETAMINOPHEN [Concomitant]
     Active Substance: ACETAMINOPHEN
     Indication: Pleuritic pain
     Route: 048
     Dates: start: 20211214
  7. ACETAMINOPHEN [Concomitant]
     Active Substance: ACETAMINOPHEN
     Route: 042
     Dates: start: 20220118, end: 20220127
  8. ENALAPRIL [Concomitant]
     Active Substance: ENALAPRIL
     Indication: Hypertension
     Dates: start: 20210722, end: 20220105
  9. SIMVASTATIN [Concomitant]
     Active Substance: SIMVASTATIN
     Indication: Hypercholesterolaemia
     Route: 048
     Dates: start: 2013
  10. MORPHINE SULFATE [Concomitant]
     Active Substance: MORPHINE SULFATE
     Indication: Pleuritic pain
     Route: 048
     Dates: start: 20220118, end: 20220118
  11. BEMIPARIN [Concomitant]
     Active Substance: BEMIPARIN
     Dates: start: 20220118, end: 20220127
  12. BROMAZEPAM [Concomitant]
     Active Substance: BROMAZEPAM
     Dates: start: 20210118, end: 20210118
  13. METOCLOPRAMIDE [Concomitant]
     Active Substance: METOCLOPRAMIDE
     Route: 042
     Dates: start: 20220118, end: 20220127
  14. OMEPRAZOLE [Concomitant]
     Active Substance: OMEPRAZOLE
     Route: 048
     Dates: start: 20220118, end: 20220127
  15. PREGABALIN [Concomitant]
     Active Substance: PREGABALIN
     Indication: Pleuritic pain
     Route: 048
     Dates: start: 20220118, end: 20220118
  16. METAMIZOLE [Concomitant]
     Active Substance: METAMIZOLE
     Indication: Pleuritic pain
     Route: 048
     Dates: start: 20220118, end: 20220118
  17. FILGRASTIM [Concomitant]
     Active Substance: FILGRASTIM
     Route: 058
     Dates: start: 20220118, end: 20220121
  18. ISOPLASMAL G [Concomitant]
     Route: 042
     Dates: start: 20220118, end: 20220124
  19. POLYETHYLENE GLYCOLS [Concomitant]
     Active Substance: POLYETHYLENE GLYCOLS
     Indication: Constipation
     Route: 048
     Dates: start: 20220120, end: 20220127

REACTIONS (1)
  - Pneumonia [Recovered/Resolved]

NARRATIVE: CASE EVENT DATE: 20220117
